FAERS Safety Report 10305920 (Version 1)
Quarter: 2014Q3

REPORT INFORMATION
  Report Type: Spontaneous
  Country: US (occurrence: US)
  Receive Date: 20140715
  Receipt Date: 20140715
  Transmission Date: 20150326
  Serious: Yes (Hospitalization)
  Sender: FDA-Public Use
  Company Number: US-BAYER-2014-102788

PATIENT
  Sex: Female

DRUGS (3)
  1. ALEVE [Suspect]
     Active Substance: NAPROXEN SODIUM
  2. CELEBREX [Concomitant]
     Active Substance: CELECOXIB
     Indication: OSTEOARTHRITIS
     Dosage: UNK UNK, PRN
  3. IBUPROFEN. [Concomitant]
     Active Substance: IBUPROFEN

REACTIONS (4)
  - Pharyngeal oedema [Unknown]
  - Hyperhidrosis [Unknown]
  - Palpitations [Unknown]
  - Drug hypersensitivity [Unknown]
